FAERS Safety Report 6080141-6 (Version None)
Quarter: 2009Q1

REPORT INFORMATION
  Report Type: 
  Country: None (occurrence: None)
  Receive Date: 20090217
  Receipt Date: 20090204
  Transmission Date: 20090719
  Serious: Yes (Hospitalization)
  Sender: FDA-Public Use
  Company Number: JP-PFIZER INC-2009166275

PATIENT

DRUGS (4)
  1. ALDACTONE [Suspect]
  2. LASIX [Concomitant]
  3. SELBEX [Concomitant]
  4. HOKUNALIN [Concomitant]

REACTIONS (2)
  - FRACTURE TREATMENT [None]
  - HYPERKALAEMIA [None]
